FAERS Safety Report 5209174-6 (Version None)
Quarter: 2007Q1

REPORT INFORMATION
  Report Type: 
  Country: None (occurrence: None)
  Receive Date: 20070111
  Receipt Date: 20070104
  Transmission Date: 20070707
  Serious: Yes (Other)
  Sender: FDA-Public Use
  Company Number: TPA2007A00014

PATIENT
  Age: 66 Year
  Sex: Male
  Weight: 79.3795 kg

DRUGS (4)
  1. ACTOS [Suspect]
     Indication: DIABETES MELLITUS NON-INSULIN-DEPENDENT
     Dosage: 30 MGM 1 IN1 D, PER ORAL
     Route: 048
     Dates: start: 20020101
  2. AMARYL [Concomitant]
  3. ULTRACET [Concomitant]
  4. CYCLOBENZAPRINE HCL [Concomitant]

REACTIONS (4)
  - BIOPSY BONE MARROW ABNORMAL [None]
  - FIBROSIS [None]
  - PANCYTOPENIA [None]
  - WEIGHT DECREASED [None]
